FAERS Safety Report 7570770-2 (Version None)
Quarter: 2011Q2

REPORT INFORMATION
  Report Type: 
  Country: None (occurrence: None)
  Receive Date: 20110624
  Receipt Date: 20110614
  Transmission Date: 20111010
  Serious: Yes (Hospitalization, Other)
  Sender: FDA-Public Use
  Company Number: US-ELI_LILLY_AND_COMPANY-US201104007583

PATIENT
  Sex: Female
  Weight: 51.6 kg

DRUGS (6)
  1. NEXIUM [Concomitant]
     Dosage: UNK, UNKNOWN
     Route: 065
  2. LASIX [Concomitant]
     Dosage: UNK, UNKNOWN
     Route: 065
  3. GEMZAR [Suspect]
     Dosage: 1800 MG, UNKNOWN
     Route: 042
     Dates: start: 20101111
  4. SPIRONOLACTONE [Concomitant]
     Dosage: UNK, UNKNOWN
     Route: 065
  5. GEMZAR [Suspect]
     Dosage: 1800 MG, UNKNOWN
     Route: 042
  6. REGLAN [Concomitant]
     Dosage: UNK, UNKNOWN
     Route: 065

REACTIONS (1)
  - COLON OPERATION [None]
